FAERS Safety Report 14565026 (Version 6)
Quarter: 2018Q2

REPORT INFORMATION
  Report Type: Spontaneous
  Country: US (occurrence: US)
  Receive Date: 20180223
  Receipt Date: 20180424
  Transmission Date: 20180711
  Serious: No
  Sender: FDA-Public Use
  Company Number: US-AMGEN-USASP2018023588

PATIENT
  Age: 67 Year
  Sex: Male
  Weight: 92.79 kg

DRUGS (7)
  1. MINOCYCLINE HCL [Concomitant]
     Active Substance: MINOCYCLINE HYDROCHLORIDE
     Dosage: 50 MG, BID
     Route: 048
  2. TRIAMTERENE AND HYDROCHLOROTHIAZIDE [Concomitant]
     Active Substance: HYDROCHLOROTHIAZIDE\TRIAMTERENE
     Dosage: 37.5-25 MG, QD (ONE)
     Route: 048
  3. FOLIC ACID. [Concomitant]
     Active Substance: FOLIC ACID
     Dosage: 1 MG, QD
     Route: 048
  4. ENBREL [Suspect]
     Active Substance: ETANERCEPT
     Indication: PRODUCT USED FOR UNKNOWN INDICATION
     Dosage: 50 MG, QWK
     Route: 065
     Dates: start: 20171016
  5. NIFEDIPINE. [Concomitant]
     Active Substance: NIFEDIPINE
     Dosage: 90 MG, QD
     Route: 048
  6. METHOTREXATE. [Concomitant]
     Active Substance: METHOTREXATE
     Dosage: 20 MG, QWK
     Route: 048
     Dates: start: 20170614
  7. CENTRUM SILVER ADULTS 50+ [Concomitant]
     Active Substance: MINERALS\VITAMINS
     Dosage: UNK UNK, QD (ONE)
     Route: 048

REACTIONS (2)
  - Drug dose omission [Unknown]
  - Wrong technique in product usage process [Unknown]
